FAERS Safety Report 5763054-6 (Version None)
Quarter: 2008Q2

REPORT INFORMATION
  Report Type: 
  Country: None (occurrence: None)
  Receive Date: 20080609
  Receipt Date: 20080528
  Transmission Date: 20081010
  Serious: Yes (Other)
  Sender: FDA-Public Use
  Company Number: CA-PFIZER INC-2008021940

PATIENT
  Sex: Male

DRUGS (4)
  1. CHANTIX [Suspect]
     Route: 048
  2. INSULIN [Concomitant]
  3. DRUG, UNSPECIFIED [Concomitant]
  4. SYNTHROID [Concomitant]
     Route: 048

REACTIONS (1)
  - BLOOD GLUCOSE INCREASED [None]
